FAERS Safety Report 6440790-X (Version None)
Quarter: 2009Q4

REPORT INFORMATION
  Report Type: 
  Country: None (occurrence: None)
  Receive Date: 20091116
  Receipt Date: 20091105
  Transmission Date: 20100525
  Serious: No
  Sender: FDA-Public Use
  Company Number: US-JNJFOC-20091102627

PATIENT
  Sex: Male

DRUGS (2)
  1. DURAGESIC-100 [Suspect]
     Indication: CANCER PAIN
     Dosage: 100UG/ HR +100UG/ HR
     Route: 062
     Dates: start: 20080101, end: 20091001
  2. DURAGESIC-100 [Suspect]
     Dosage: 100UG/ HR+100 UG/HR
     Route: 062
     Dates: start: 20091001

REACTIONS (7)
  - CYST [None]
  - DRUG INEFFECTIVE [None]
  - DRUG PRESCRIBING ERROR [None]
  - ERYTHEMA [None]
  - HEADACHE [None]
  - INCORRECT DRUG ADMINISTRATION DURATION [None]
  - RASH [None]
